FAERS Safety Report 13631575 (Version 2)
Quarter: 2017Q2

REPORT INFORMATION
  Report Type: Spontaneous
  Country: SI (occurrence: SI)
  Receive Date: 20170608
  Receipt Date: 20170619
  Transmission Date: 20170830
  Serious: Yes (Other)
  Sender: FDA-Public Use
  Company Number: SI-BAYER-2017-024407

PATIENT
  Sex: Female

DRUGS (5)
  1. STIVARGA [Suspect]
     Active Substance: REGORAFENIB
     Indication: RECTOSIGMOID CANCER METASTATIC
     Dosage: 160 MG, QD
     Route: 048
     Dates: start: 201510
  2. STIVARGA [Suspect]
     Active Substance: REGORAFENIB
     Indication: RECTOSIGMOID CANCER METASTATIC
     Dosage: 120 MG, QD
     Route: 048
  3. STIVARGA [Suspect]
     Active Substance: REGORAFENIB
     Indication: RECTOSIGMOID CANCER METASTATIC
     Dosage: 80 MG, QD (2 WEEK THERAPY, 2 WEEK PAUSE/4 WEEKS)
     Route: 048
     Dates: end: 201704
  4. STIVARGA [Suspect]
     Active Substance: REGORAFENIB
     Indication: RECTOSIGMOID CANCER METASTATIC
     Dosage: 120 MG, QD
     Route: 048
  5. STIVARGA [Suspect]
     Active Substance: REGORAFENIB
     Indication: RECTOSIGMOID CANCER METASTATIC
     Dosage: 80 MG, QD
     Route: 048

REACTIONS (11)
  - Palmar-plantar erythrodysaesthesia syndrome [Recovered/Resolved]
  - Weight decreased [None]
  - Upper respiratory tract infection [None]
  - Cough [None]
  - Pyrexia [None]
  - Fatigue [Recovered/Resolved]
  - Dyspnoea [None]
  - Rectosigmoid cancer metastatic [None]
  - Musculoskeletal pain [None]
  - Thrombocytopenia [Recovered/Resolved]
  - Alopecia [Recovered/Resolved]

NARRATIVE: CASE EVENT DATE: 2015
